FAERS Safety Report 19740150 (Version 2)
Quarter: 2021Q3

REPORT INFORMATION
  Report Type: Report from Study
  Country: US (occurrence: US)
  Receive Date: 20210824
  Receipt Date: 20210901
  Transmission Date: 20211014
  Serious: Yes (Hospitalization, Other)
  Sender: FDA-Public Use
  Company Number: US-EMD SERONO-9259923

PATIENT
  Age: 67 Year
  Sex: Male

DRUGS (1)
  1. REBIF [Suspect]
     Active Substance: INTERFERON BETA-1A
     Indication: MULTIPLE SCLEROSIS
     Route: 058
     Dates: start: 20160812, end: 202106

REACTIONS (4)
  - Diabetes mellitus [Recovering/Resolving]
  - Pulmonary mass [Not Recovered/Not Resolved]
  - Pulmonary oedema [Recovered/Resolved]
  - Myocardial oedema [Recovered/Resolved]

NARRATIVE: CASE EVENT DATE: 2018
